FAERS Safety Report 14942452 (Version 2)
Quarter: 2018Q2

REPORT INFORMATION
  Report Type: Spontaneous
  Country: AU (occurrence: AU)
  Receive Date: 20180528
  Receipt Date: 20180607
  Transmission Date: 20180711
  Serious: Yes (Other)
  Sender: FDA-Public Use
  Company Number: AU-ABBVIE-18P-008-2367712-00

PATIENT
  Sex: Male
  Weight: 67 kg

DRUGS (10)
  1. NORVIR [Suspect]
     Active Substance: RITONAVIR
     Indication: HIV INFECTION
     Dosage: UNSPECIFIED FORMULATION AND ROUTE OF ADMINISTRATION,?UNSPECIFIED DOSE AND FREQUENCY
     Route: 048
     Dates: start: 20120215, end: 201307
  2. ETRAVIRINE [Suspect]
     Active Substance: ETRAVIRINE
     Indication: HIV INFECTION
     Route: 048
     Dates: start: 201307, end: 20160406
  3. RALTEGRAVIR. [Suspect]
     Active Substance: RALTEGRAVIR
     Indication: HIV INFECTION
     Dosage: UNSPECIFIED FORMULATION AND ROUTE OF ADMINISTRATION,?UNSPECIFIED DOSE AND FREQUENCY
     Route: 065
     Dates: start: 20120215, end: 20160406
  4. LAMIVUDINE. [Suspect]
     Active Substance: LAMIVUDINE
     Indication: PRODUCT USED FOR UNKNOWN INDICATION
     Route: 065
     Dates: start: 20120215
  5. DOLUTEGRAVIR [Suspect]
     Active Substance: DOLUTEGRAVIR
     Route: 065
     Dates: start: 20160406
  6. QUETIAPINE. [Suspect]
     Active Substance: QUETIAPINE
     Indication: PRODUCT USED FOR UNKNOWN INDICATION
     Route: 065
  7. LAMOTRIGINE. [Concomitant]
     Active Substance: LAMOTRIGINE
     Indication: PRODUCT USED FOR UNKNOWN INDICATION
  8. LAMIVUDINE. [Suspect]
     Active Substance: LAMIVUDINE
     Route: 065
     Dates: start: 20160406
  9. PREZISTA [Suspect]
     Active Substance: DARUNAVIR ETHANOLATE
     Indication: HIV INFECTION
     Dosage: UNSPECIFIED DOSE AND FREQUENCY
     Route: 048
     Dates: start: 20120215, end: 20130715
  10. DOLUTEGRAVIR [Suspect]
     Active Substance: DOLUTEGRAVIR
     Indication: PRODUCT USED FOR UNKNOWN INDICATION
     Route: 065

REACTIONS (7)
  - Oropharyngeal candidiasis [Unknown]
  - Viral load increased [Unknown]
  - Myopathy [Unknown]
  - Oesophageal candidiasis [Unknown]
  - Blood cholesterol increased [Unknown]
  - Osteoporosis [Unknown]
  - Low density lipoprotein increased [Unknown]

NARRATIVE: CASE EVENT DATE: 2012
